FAERS Safety Report 9927527 (Version 1)
Quarter: 2014Q1

REPORT INFORMATION
  Report Type: Report from Study
  Country: US (occurrence: US)
  Receive Date: 20140227
  Receipt Date: 20140227
  Transmission Date: 20141002
  Serious: Yes (Other)
  Sender: FDA-Public Use
  Company Number: US-ROCHE-1339312

PATIENT
  Sex: Male

DRUGS (17)
  1. LUCENTIS [Suspect]
     Indication: DIABETIC RETINAL OEDEMA
     Dosage: OU
     Route: 050
  2. LUCENTIS [Suspect]
     Indication: DIABETIC EYE DISEASE
  3. LUCENTIS [Suspect]
     Indication: DIABETIC RETINOPATHY
  4. AVASTIN [Suspect]
     Indication: PRODUCT USED FOR UNKNOWN INDICATION
     Route: 065
     Dates: end: 20090211
  5. ALTACE [Concomitant]
  6. VICTOZA [Concomitant]
  7. PROTONIX (UNITED STATES) [Concomitant]
  8. COENZYME Q-10 [Concomitant]
  9. FISH OIL [Concomitant]
  10. TETRACAINE [Concomitant]
  11. TOBREX [Concomitant]
     Dosage: POST INJECTION EYE DROPS
     Route: 065
  12. BETADINE [Concomitant]
     Route: 065
  13. CRESTOR [Concomitant]
  14. METFORMIN [Concomitant]
     Route: 065
  15. LASIX [Concomitant]
  16. PRAVASTATIN [Concomitant]
  17. RAMIPRIL [Concomitant]

REACTIONS (10)
  - Coronary artery bypass [Unknown]
  - Myocardial infarction [Unknown]
  - Macular fibrosis [Unknown]
  - Cataract [Unknown]
  - Dry eye [Unknown]
  - Intraocular lens implant [Unknown]
  - Visual acuity reduced [Unknown]
  - Visual impairment [Unknown]
  - Weight decreased [Unknown]
  - Blood glucose fluctuation [Unknown]
